FAERS Safety Report 13601431 (Version 1)
Quarter: 2017Q2

REPORT INFORMATION
  Report Type: Spontaneous
  Country: IR (occurrence: IR)
  Receive Date: 20170601
  Receipt Date: 20170601
  Transmission Date: 20170830
  Serious: Yes (Death)
  Sender: FDA-Public Use
  Company Number: IR-IMPAX LABORATORIES, INC-2017-IPXL-01565

PATIENT

DRUGS (2)
  1. METOCLOPRAMIDE HYDROCHLORIDE IR [Suspect]
     Active Substance: METOCLOPRAMIDE HYDROCHLORIDE
     Indication: GASTROINTESTINAL MOTILITY DISORDER
     Dosage: 20 MG INFUSED IN 100ML IN NORMAL SALINE
     Route: 065
  2. NEOSTIGMINE [Suspect]
     Active Substance: NEOSTIGMINE
     Indication: GASTROINTESTINAL MOTILITY DISORDER
     Dosage: 250 MG, INFUSED IN 100ML NORMAL SALINE
     Route: 042

REACTIONS (1)
  - Sepsis [Fatal]
